FAERS Safety Report 13459886 (Version 1)
Quarter: 2017Q2

REPORT INFORMATION
  Report Type: Spontaneous
  Country: US (occurrence: US)
  Receive Date: 20170420
  Receipt Date: 20170420
  Transmission Date: 20170830
  Serious: No
  Sender: FDA-Public Use
  Company Number: US-TRIS PHARMA, INC-2017TRISPO00003

PATIENT

DRUGS (1)
  1. DEXTROMETHORPHAN POLISTIREX [Suspect]
     Active Substance: DEXTROMETHORPHAN HYDROBROMIDE
     Indication: COUGH
     Dosage: 2 DOSES, UNK
     Route: 048

REACTIONS (4)
  - Reaction to preservatives [None]
  - Diarrhoea [None]
  - Vomiting [None]
  - Hypersensitivity [Not Recovered/Not Resolved]
